FAERS Safety Report 22245965 (Version 1)
Quarter: 2023Q2

REPORT INFORMATION
  Report Type: Spontaneous
  Country: CA (occurrence: CA)
  Receive Date: 20230424
  Receipt Date: 20230424
  Transmission Date: 20230721
  Serious: Yes (Other)
  Sender: FDA-Public Use
  Company Number: CA-SAMSUNG BIOEPIS-SB-2023-10174

PATIENT
  Age: 70 Year
  Sex: Male
  Weight: 85 kg

DRUGS (1)
  1. INFLIXIMAB [Suspect]
     Active Substance: INFLIXIMAB
     Indication: Crohn^s disease
     Route: 042

REACTIONS (8)
  - Abdominal hernia [Unknown]
  - Abdominal pain [Unknown]
  - Condition aggravated [Unknown]
  - Discomfort [Unknown]
  - Inguinal hernia [Unknown]
  - Malaise [Unknown]
  - Pain [Unknown]
  - Off label use [Unknown]
